FAERS Safety Report 15494717 (Version 1)
Quarter: 2018Q4

REPORT INFORMATION
  Report Type: Report from Study
  Country: US (occurrence: US)
  Receive Date: 20181012
  Receipt Date: 20181012
  Transmission Date: 20190205
  Serious: Yes (Death, Hospitalization)
  Sender: FDA-Public Use
  Company Number: US-TESARO, INC-US-2018TSO03773

PATIENT
  Age: 80 Year
  Sex: Female

DRUGS (3)
  1. ZEJULA [Suspect]
     Active Substance: NIRAPARIB
     Indication: OVARIAN CANCER
     Dosage: 300 MG, QD
     Route: 048
     Dates: start: 20180714, end: 2018
  2. ZEJULA [Suspect]
     Active Substance: NIRAPARIB
     Dosage: 300 MG, QOD
     Route: 048
     Dates: start: 2018, end: 20180806
  3. PROMETHAZINE HCL [Concomitant]
     Active Substance: PROMETHAZINE HYDROCHLORIDE
     Indication: NAUSEA

REACTIONS (12)
  - Foaming at mouth [Unknown]
  - Intentional product misuse [Unknown]
  - Decreased appetite [Fatal]
  - Vomiting [Fatal]
  - Fatigue [Fatal]
  - Malaise [Unknown]
  - Death [Fatal]
  - Anxiety [Unknown]
  - Nausea [Fatal]
  - Dyspnoea [Fatal]
  - Inappropriate schedule of product administration [Unknown]
  - Asthenia [Fatal]

NARRATIVE: CASE EVENT DATE: 20180723
